FAERS Safety Report 6690745-5 (Version None)
Quarter: 2010Q2

REPORT INFORMATION
  Report Type: 
  Country: None (occurrence: None)
  Receive Date: 20100421
  Receipt Date: 20100409
  Transmission Date: 20101027
  Serious: Yes (Other)
  Sender: FDA-Public Use
  Company Number: JP-PFIZER INC-2010046383

PATIENT

DRUGS (3)
  1. AZULFIDINE [Suspect]
     Dosage: UNK
     Route: 048
  2. NU LOTAN [Concomitant]
     Route: 048
  3. EVISTA [Concomitant]
     Route: 048

REACTIONS (2)
  - BLOOD LACTATE DEHYDROGENASE INCREASED [None]
  - PANCYTOPENIA [None]
